FAERS Safety Report 5382077-2 (Version None)
Quarter: 2007Q3

REPORT INFORMATION
  Report Type: 
  Country: None (occurrence: None)
  Receive Date: 20070705
  Receipt Date: 20070621
  Transmission Date: 20080115
  Serious: Yes (Hospitalization, Other)
  Sender: FDA-Public Use
  Company Number: 2007-01917

PATIENT
  Age: 29 Year
  Sex: Female

DRUGS (6)
  1. VELCADE [Suspect]
     Indication: ADRENOCORTICAL CARCINOMA
     Dosage: 1.30 MG/M2
     Dates: end: 20070501
  2. AVASTIN [Concomitant]
  3. GLEEVEC [Concomitant]
  4. SAMARIUM [153 SM] LEXIDRONAM PENTASODIUM (SAMARIUM [153 SM] LEXIDRONAM [Concomitant]
  5. PREDNISONE [Concomitant]
  6. FLORINEF [Concomitant]

REACTIONS (9)
  - BLOOD PRESSURE INCREASED [None]
  - CONVULSION [None]
  - ELECTROENCEPHALOGRAM ABNORMAL [None]
  - HYPOAESTHESIA [None]
  - PAIN IN EXTREMITY [None]
  - POSTICTAL STATE [None]
  - REVERSIBLE POSTERIOR LEUKOENCEPHALOPATHY SYNDROME [None]
  - SPINAL CORD COMPRESSION [None]
  - SPINAL DISORDER [None]
